FAERS Safety Report 21682118 (Version 1)
Quarter: 2022Q4

REPORT INFORMATION
  Report Type: Report from Study
  Country: FR (occurrence: FR)
  Receive Date: 20221205
  Receipt Date: 20221205
  Transmission Date: 20230113
  Serious: Yes (Other)
  Sender: FDA-Public Use
  Company Number: FR-MYLANLABS-2022M1135998

PATIENT
  Age: 60 Year
  Sex: Female

DRUGS (6)
  1. METHOTREXATE [Suspect]
     Active Substance: METHOTREXATE
     Indication: Giant cell arteritis
     Dosage: UNK
     Route: 065
  2. PREDNISONE [Suspect]
     Active Substance: PREDNISONE
     Indication: Giant cell arteritis
     Dosage: UNK, INITIAL DOSAGE NOT STATED
     Route: 048
  3. PREDNISONE [Suspect]
     Active Substance: PREDNISONE
     Dosage: 12.5 MILLIGRAM, QD
     Route: 048
  4. ANAKINRA [Concomitant]
     Active Substance: ANAKINRA
     Indication: Giant cell arteritis
     Dosage: 100 MILLIGRAM, QD, INFUSION
     Route: 058
  5. ANAKINRA [Concomitant]
     Active Substance: ANAKINRA
     Dosage: 100 MILLIGRAM, QOD, INFUSION
     Route: 058
  6. ANAKINRA [Concomitant]
     Active Substance: ANAKINRA
     Dosage: 100 MILLIGRAM, Q3D, INFUSION
     Route: 058

REACTIONS (2)
  - Treatment failure [Unknown]
  - Steroid dependence [Unknown]
